FAERS Safety Report 25414347 (Version 1)
Quarter: 2025Q2

REPORT INFORMATION
  Report Type: Spontaneous
  Country: US (occurrence: US)
  Receive Date: 20250609
  Receipt Date: 20250609
  Transmission Date: 20250717
  Serious: No
  Sender: SANOFI AVENTIS
  Company Number: US-SA-2025SA162352

PATIENT
  Age: 38 Year
  Sex: Male
  Weight: 139.25 kg

DRUGS (11)
  1. DUPIXENT [Suspect]
     Active Substance: DUPILUMAB
     Indication: Dermatitis atopic
     Dosage: 300 MG, QOW
     Route: 058
     Dates: start: 20230420
  2. PREDNISONE [Concomitant]
     Active Substance: PREDNISONE
  3. CARVEDILOL [Concomitant]
     Active Substance: CARVEDILOL
  4. AMBIEN [Concomitant]
     Active Substance: ZOLPIDEM TARTRATE
  5. VALSARTAN [Concomitant]
     Active Substance: VALSARTAN
  6. ALBUTEROL SULFATE [Concomitant]
     Active Substance: ALBUTEROL SULFATE
  7. ADVAIR HFA [Concomitant]
     Active Substance: FLUTICASONE PROPIONATE\SALMETEROL XINAFOATE
  8. XANAX [Concomitant]
     Active Substance: ALPRAZOLAM
  9. VIIBRYD [Concomitant]
     Active Substance: VILAZODONE HYDROCHLORIDE
  10. SPIRONOLACTONE [Concomitant]
     Active Substance: SPIRONOLACTONE
  11. ROZEREM [Concomitant]
     Active Substance: RAMELTEON

REACTIONS (7)
  - Panic reaction [Unknown]
  - Asthma [Unknown]
  - Skin irritation [Unknown]
  - Dermatitis [Unknown]
  - Erythema [Unknown]
  - Pruritus [Unknown]
  - Eczema [Unknown]

NARRATIVE: CASE EVENT DATE: 20250401
